FAERS Safety Report 18618768 (Version 4)
Quarter: 2024Q1

REPORT INFORMATION
  Report Type: Spontaneous
  Country: JP (occurrence: JP)
  Receive Date: 20201215
  Receipt Date: 20240305
  Transmission Date: 20240410
  Serious: Yes (Life-Threatening, Other)
  Sender: FDA-Public Use
  Company Number: JP-ACTELION-A-CH2019-195952

PATIENT
  Age: 24 Year
  Sex: Female
  Weight: 51 kg

DRUGS (61)
  1. OPSUMIT [Suspect]
     Active Substance: MACITENTAN
     Indication: Pulmonary arterial hypertension
     Dosage: 5 MG, BID
     Route: 048
     Dates: start: 20190326, end: 20190326
  2. OPSUMIT [Suspect]
     Active Substance: MACITENTAN
     Indication: Pulmonary arterial hypertension
     Dosage: 5 MG, QD
     Route: 048
     Dates: start: 20190327
  3. OPSUMIT [Suspect]
     Active Substance: MACITENTAN
     Dosage: UNK
     Route: 048
  4. EPOPROSTENOL [Suspect]
     Active Substance: EPOPROSTENOL
     Indication: Pulmonary arterial hypertension
     Dosage: 4.4 NG/KG, PER MIN
     Route: 042
  5. EPOPROSTENOL [Suspect]
     Active Substance: EPOPROSTENOL
     Indication: Pulmonary arterial hypertension
     Route: 042
     Dates: start: 20190323, end: 201903
  6. EPOPROSTENOL [Suspect]
     Active Substance: EPOPROSTENOL
     Route: 042
     Dates: start: 201903, end: 201903
  7. EPOPROSTENOL [Suspect]
     Active Substance: EPOPROSTENOL
     Route: 042
     Dates: start: 201903, end: 201903
  8. EPOPROSTENOL [Suspect]
     Active Substance: EPOPROSTENOL
     Route: 042
     Dates: start: 201903, end: 201903
  9. EPOPROSTENOL [Suspect]
     Active Substance: EPOPROSTENOL
     Route: 042
     Dates: start: 201903, end: 201903
  10. EPOPROSTENOL [Suspect]
     Active Substance: EPOPROSTENOL
     Route: 042
     Dates: start: 20190329, end: 20190329
  11. UPTRAVI [Suspect]
     Active Substance: SELEXIPAG
     Indication: Pulmonary arterial hypertension
     Dosage: 0.2 MG, BID
     Route: 048
     Dates: start: 20190417, end: 20200702
  12. UPTRAVI [Suspect]
     Active Substance: SELEXIPAG
     Indication: Pulmonary arterial hypertension
     Route: 048
     Dates: start: 20200703
  13. ADCIRCA [Suspect]
     Active Substance: TADALAFIL
     Indication: Pulmonary arterial hypertension
     Dosage: 2.5-40 MG BID
     Route: 048
     Dates: start: 20190319
  14. ADCIRCA [Suspect]
     Active Substance: TADALAFIL
     Indication: Pulmonary arterial hypertension
     Dosage: UNK
     Route: 048
  15. EDOXABAN TOSYLATE [Suspect]
     Active Substance: EDOXABAN TOSYLATE
     Indication: Jugular vein thrombosis
     Dosage: 30 MG, QD
     Route: 048
     Dates: start: 20190418, end: 20190507
  16. SPIRONOLACTONE [Suspect]
     Active Substance: SPIRONOLACTONE
     Indication: Cardiac failure
     Dosage: 25 MG, QD
     Route: 048
     Dates: start: 20190327, end: 20190507
  17. SPIRONOLACTONE [Suspect]
     Active Substance: SPIRONOLACTONE
     Route: 048
     Dates: end: 20190507
  18. AZOSEMIDE [Suspect]
     Active Substance: AZOSEMIDE
     Indication: Cardiac failure
     Dosage: 15-30 MG QD
     Route: 048
     Dates: start: 20190403, end: 20190426
  19. AZOSEMIDE [Suspect]
     Active Substance: AZOSEMIDE
     Dosage: 15 MG, QD
     Route: 048
     Dates: start: 20190507
  20. FEBUXOSTAT [Suspect]
     Active Substance: FEBUXOSTAT
     Indication: Hyperuricaemia
     Dosage: 10 MG, QD
     Route: 048
     Dates: start: 20190424, end: 20190428
  21. DOPAMINE [Concomitant]
     Active Substance: DOPAMINE HYDROCHLORIDE
     Route: 065
  22. DOPAMINE [Concomitant]
     Active Substance: DOPAMINE HYDROCHLORIDE
     Route: 065
  23. DOBUTAMINE [Concomitant]
     Active Substance: DOBUTAMINE HYDROCHLORIDE
     Dosage: 3GAMMA
     Route: 042
  24. DOBUTAMINE [Concomitant]
     Active Substance: DOBUTAMINE HYDROCHLORIDE
     Dosage: 3.6 GAMMA
     Route: 042
  25. DOBUTAMINE [Concomitant]
     Active Substance: DOBUTAMINE HYDROCHLORIDE
     Dosage: 2.7 GAMMA
     Route: 042
  26. DOBUTAMINE [Concomitant]
     Active Substance: DOBUTAMINE HYDROCHLORIDE
     Dosage: 0.9 Y
     Route: 042
  27. MIRTAZAPINE [Concomitant]
     Active Substance: MIRTAZAPINE
     Route: 067
  28. FUROSEMIDE [Concomitant]
     Active Substance: FUROSEMIDE
     Indication: Right ventricular failure
     Route: 042
     Dates: start: 20190327, end: 20190403
  29. NITRIC OXIDE [Concomitant]
     Active Substance: NITRIC OXIDE
     Dosage: 20PPM
     Route: 055
  30. NITRIC OXIDE [Concomitant]
     Active Substance: NITRIC OXIDE
     Dosage: 10PPM
     Route: 055
  31. LANSOPRAZOLE [Concomitant]
     Active Substance: LANSOPRAZOLE
     Indication: Prophylaxis
     Dosage: 15 MG, QD
     Dates: start: 20190320, end: 20190507
  32. CARBOCYSTEINE [Concomitant]
     Active Substance: CARBOCYSTEINE
     Indication: Bronchitis
     Dosage: 1500 MG, QD
     Route: 048
     Dates: start: 20190328, end: 20190425
  33. DEXTROMETHORPHAN HYDROBROMIDE [Concomitant]
     Active Substance: DEXTROMETHORPHAN HYDROBROMIDE
     Indication: Bronchitis
     Dosage: 45 MG, QD
     Dates: end: 20190425
  34. DEXTROMETHORPHAN HYDROBROMIDE [Concomitant]
     Active Substance: DEXTROMETHORPHAN HYDROBROMIDE
     Route: 048
     Dates: start: 20190404, end: 20190425
  35. K SUPPLY [POTASSIUM CHLORIDE] [Concomitant]
     Indication: Hypokalaemia
     Dosage: 1200 MG, QD
     Dates: start: 20190507
  36. SODIUM FERROUS CITRATE [Concomitant]
     Active Substance: SODIUM FERROUS CITRATE
     Indication: Normocytic anaemia
     Dosage: 50MG-100MG TWICE A DAY
     Dates: start: 20190703
  37. MILRINONE [Concomitant]
     Active Substance: MILRINONE
     Indication: Right ventricular failure
     Dosage: 0.125GAMMA
     Route: 042
     Dates: start: 20190319, end: 20190403
  38. MILRINONE [Concomitant]
     Active Substance: MILRINONE
     Route: 042
  39. INOVAN [DOPAMINE HYDROCHLORIDE] [Concomitant]
     Indication: Right ventricular failure
     Route: 042
     Dates: start: 20190329, end: 20190405
  40. HEPARIN [Concomitant]
     Active Substance: HEPARIN SODIUM
     Indication: Pulmonary arterial hypertension
     Route: 042
     Dates: start: 20190320, end: 20190410
  41. IRON SUCROSE [Concomitant]
     Active Substance: IRON SUCROSE
     Indication: Normocytic anaemia
     Route: 042
     Dates: start: 20190322, end: 20190327
  42. REMIFENTANIL [Concomitant]
     Active Substance: REMIFENTANIL
     Indication: Anaesthesia procedure
     Dosage: 2V-5VX1/DAY
     Route: 042
     Dates: start: 20190326, end: 20190326
  43. FENTANYL [Concomitant]
     Active Substance: FENTANYL\FENTANYL CITRATE
     Indication: Anaesthesia procedure
     Route: 042
     Dates: start: 20190326, end: 20190326
  44. FENTANYL [Concomitant]
     Active Substance: FENTANYL\FENTANYL CITRATE
     Dosage: 2AX1-2/DAY
     Route: 042
     Dates: start: 20190326, end: 20190326
  45. OXYTOCIN [Concomitant]
     Active Substance: OXYTOCIN
     Indication: Caesarean section
     Route: 042
     Dates: start: 20190326, end: 20190327
  46. NOREPINEPHRINE BITARTRATE [Concomitant]
     Active Substance: NOREPINEPHRINE BITARTRATE
     Indication: General anaesthesia
     Route: 042
     Dates: start: 20190326, end: 20190326
  47. AMPICILLIN SODIUM [Concomitant]
     Active Substance: AMPICILLIN SODIUM
     Indication: Prophylaxis
     Route: 042
     Dates: start: 20190326, end: 20190326
  48. GENTAMICIN SULFATE [Concomitant]
     Active Substance: GENTAMICIN SULFATE
     Indication: Prophylaxis
     Route: 042
     Dates: start: 20190326, end: 20190326
  49. PRECEDEX [Concomitant]
     Active Substance: DEXMEDETOMIDINE HYDROCHLORIDE
     Indication: Analgesic therapy
     Route: 042
     Dates: start: 20190326, end: 20190326
  50. CEFAZOLIN SODIUM [Concomitant]
     Active Substance: CEFAZOLIN SODIUM
     Indication: Prophylaxis
     Route: 042
     Dates: start: 20190327, end: 20190403
  51. TADALAFIL [Concomitant]
     Active Substance: TADALAFIL
     Indication: Pulmonary arterial hypertension
     Route: 048
  52. TADALAFIL [Concomitant]
     Active Substance: TADALAFIL
     Route: 048
  53. TADALAFIL [Concomitant]
     Active Substance: TADALAFIL
     Route: 048
  54. TADALAFIL [Concomitant]
     Active Substance: TADALAFIL
     Route: 048
  55. DOBUTAMINE HYDROCHLORIDE [Concomitant]
     Active Substance: DOBUTAMINE HYDROCHLORIDE
     Indication: Right ventricular failure
     Route: 042
     Dates: start: 20190319, end: 20190413
  56. OXYGEN [Concomitant]
     Active Substance: OXYGEN
     Route: 055
  57. OXYGEN [Concomitant]
     Active Substance: OXYGEN
     Dosage: DOSE UNKNOWN, NASAL CANNULA
     Route: 055
  58. OXYGEN [Concomitant]
     Active Substance: OXYGEN
     Dosage: DOSE UNKNOWN, NON-REBREATHER MASK
     Route: 055
  59. OXYGEN [Concomitant]
     Active Substance: OXYGEN
     Dosage: DOSE UNKNOWN, NON-INVASIVE POSITIVE PRESSURE-VENTILATION
     Route: 055
  60. OXYGEN [Concomitant]
     Active Substance: OXYGEN
     Dosage: DOSE UNKNOWN, NASAL HIGH FLOW
     Route: 055
  61. OXYGEN [Concomitant]
     Active Substance: OXYGEN
     Dosage: DOSE UNKNOWN, NASAL CANNULA
     Route: 055

REACTIONS (15)
  - Oxygen saturation decreased [Recovering/Resolving]
  - Platelet count decreased [Recovering/Resolving]
  - Condition aggravated [Recovering/Resolving]
  - Platelet transfusion [Unknown]
  - Headache [Recovering/Resolving]
  - Diarrhoea [Recovering/Resolving]
  - Liver disorder [Recovered/Resolved]
  - Alanine aminotransferase increased [Recovered/Resolved]
  - Aspartate aminotransferase increased [Recovered/Resolved]
  - Gamma-glutamyltransferase [Recovered/Resolved]
  - Pulmonary oedema [Recovering/Resolving]
  - Palpitations [Recovered/Resolved]
  - Chest pain [Recovered/Resolved]
  - Off label use [Unknown]
  - Exposure during pregnancy [Recovered/Resolved]

NARRATIVE: CASE EVENT DATE: 20190324
